FAERS Safety Report 21057180 (Version 1)
Quarter: 2022Q3

REPORT INFORMATION
  Report Type: Spontaneous
  Country: US (occurrence: US)
  Receive Date: 20220708
  Receipt Date: 20220708
  Transmission Date: 20221026
  Serious: No
  Sender: FDA-Public Use
  Company Number: US-BRISTOL-MYERS SQUIBB COMPANY-2022-063941

PATIENT
  Age: 72 Year
  Sex: Female
  Weight: 77.56 kg

DRUGS (8)
  1. REVLIMID [Suspect]
     Active Substance: LENALIDOMIDE
     Indication: Chronic myeloid leukaemia
     Dosage: DOSE : 10MG;     FREQ : 21 DAYS ON, 7 DAYS OFF
     Route: 048
  2. BUMEX [Concomitant]
     Active Substance: BUMETANIDE
  3. ENTRESTO [Concomitant]
     Active Substance: SACUBITRIL\VALSARTAN
  4. FENOLIP [FENOFIBRATE] [Concomitant]
  5. METOLAZONE [Concomitant]
     Active Substance: METOLAZONE
  6. METOPROLOL [Concomitant]
     Active Substance: METOPROLOL
  7. ZOFRAN [Concomitant]
     Active Substance: ONDANSETRON HYDROCHLORIDE
  8. VERQUVO [Concomitant]
     Active Substance: VERICIGUAT

REACTIONS (1)
  - Intentional product use issue [Unknown]
